FAERS Safety Report 8921934 (Version 1)
Quarter: 2012Q4

REPORT INFORMATION
  Report Type: Spontaneous
  Country: US (occurrence: None)
  Receive Date: 20121119
  Receipt Date: 20121119
  Transmission Date: 20130627
  Serious: Yes (Other)
  Sender: FDA-Public Use
  Company Number: None

PATIENT
  Age: 66 Year
  Sex: Male
  Weight: 83.01 kg

DRUGS (1)
  1. ACIPHEX [Suspect]
     Indication: ULCER
     Route: 048
     Dates: start: 20121114, end: 20121207

REACTIONS (1)
  - Diarrhoea [None]
